FAERS Safety Report 12529998 (Version 2)
Quarter: 2017Q3

REPORT INFORMATION
  Report Type: Spontaneous
  Country: IT (occurrence: IT)
  Receive Date: 20160706
  Receipt Date: 20170831
  Transmission Date: 20171127
  Serious: Yes (Other)
  Sender: FDA-Public Use
  Company Number: IT-TEVA-672263ACC

PATIENT
  Age: 69 Year
  Sex: Male

DRUGS (2)
  1. TRIPTORELIN PAMOATE [Suspect]
     Active Substance: TRIPTORELIN PAMOATE
  2. BICALUTAMIDE. [Suspect]
     Active Substance: BICALUTAMIDE

REACTIONS (1)
  - Prostate cancer [Unknown]
